FAERS Safety Report 8308992-5 (Version None)
Quarter: 2012Q2

REPORT INFORMATION
  Report Type: 
  Country: None (occurrence: None)
  Receive Date: 20120424
  Receipt Date: 20120411
  Transmission Date: 20120825
  Serious: Yes (Life-Threatening, Hospitalization, Other)
  Sender: FDA-Public Use
  Company Number: US-PFIZER INC-2012097256

PATIENT
  Sex: Female

DRUGS (6)
  1. DILANTIN-125 [Suspect]
     Indication: CONVULSION
     Dosage: 160MG EVERY AM AND 200MG EVERY PM
     Route: 065
     Dates: start: 20070809
  2. MORPHINE SULFATE [Suspect]
     Indication: BREAKTHROUGH PAIN
     Dosage: UNK
     Route: 065
  3. BUTRANS [Suspect]
     Indication: OSTEOARTHRITIS
     Dosage: 10 MCG/HR, WEEKLY
     Route: 062
     Dates: start: 20120117, end: 20120312
  4. TRAMADOL HCL [Suspect]
     Indication: BREAKTHROUGH PAIN
  5. BUTRANS [Suspect]
     Indication: BREAKTHROUGH PAIN
  6. TRAMADOL HCL [Suspect]
     Indication: OSTEOARTHRITIS
     Dosage: 50 MG, 4X/DAY EVERY 6 HOURS
     Route: 065
     Dates: start: 20120214

REACTIONS (3)
  - DRUG LEVEL DECREASED [None]
  - CONVULSION [None]
  - PNEUMONIA [None]
